FAERS Safety Report 4993538-X (Version None)
Quarter: 2006Q2

REPORT INFORMATION
  Report Type: 
  Country: None (occurrence: None)
  Receive Date: 20060504
  Receipt Date: 20060504
  Transmission Date: 20061013
  Serious: Yes (Hospitalization)
  Sender: FDA-Public Use
  Company Number: None

PATIENT
  Age: 66 Year
  Sex: Male
  Weight: 115.2136 kg

DRUGS (12)
  1. PROCRIT [Suspect]
     Indication: ANAEMIA
     Dosage: 80, 000 SQ WKLY
     Route: 058
     Dates: start: 20060417, end: 20060501
  2. CYTOXAN [Suspect]
     Indication: BREAST CANCER METASTATIC
     Dosage: 500 MG/M2 IV Q3WKS
     Route: 042
     Dates: start: 20060405, end: 20060425
  3. ADRIAMYCIN PFS [Suspect]
     Indication: BREAST CANCER METASTATIC
     Dosage: 50 MG /M2 IV Q 3 WKS
     Route: 042
     Dates: start: 20060405, end: 20060428
  4. ABRAXANE [Suspect]
     Indication: BREAST CANCER METASTATIC
     Dosage: 175 MG /M2 IV Q 3 WKS
     Route: 042
     Dates: start: 20060407, end: 20060425
  5. ASPIRIN [Concomitant]
  6. LIPITOR [Concomitant]
  7. LORTAB [Concomitant]
  8. FEMARA [Concomitant]
  9. ZESTRIL [Concomitant]
  10. NEXIUM [Concomitant]
  11. VERAPAMIL [Concomitant]
  12. GEMFIBROZIL [Concomitant]

REACTIONS (4)
  - CARDIAC FAILURE CONGESTIVE [None]
  - CHEST PAIN [None]
  - SINUS TACHYCARDIA [None]
  - SUPRAVENTRICULAR TACHYCARDIA [None]
